FAERS Safety Report 12821190 (Version 1)
Quarter: 2016Q4

REPORT INFORMATION
  Report Type: Spontaneous
  Country: US (occurrence: US)
  Receive Date: 20161007
  Receipt Date: 20161007
  Transmission Date: 20170207
  Serious: Yes (Other)
  Sender: FDA-Public Use
  Company Number: US-RELYPSA-RLY2016002782

PATIENT
  Age: 72 Year
  Sex: Male

DRUGS (12)
  1. ALLOPURINOL. [Concomitant]
     Active Substance: ALLOPURINOL
  2. VELTASSA [Suspect]
     Active Substance: PATIROMER
     Indication: HYPERKALAEMIA
     Dosage: 8.4 G, QD
     Route: 048
     Dates: start: 201608
  3. CLONIDINE. [Concomitant]
     Active Substance: CLONIDINE
  4. MAGNESIUM [Concomitant]
     Active Substance: MAGNESIUM
  5. VITAMIN C [Concomitant]
     Active Substance: ASCORBIC ACID
  6. EDARBI [Concomitant]
     Active Substance: AZILSARTAN KAMEDOXOMIL
  7. VITAMIN D3 [Concomitant]
     Active Substance: CHOLECALCIFEROL
  8. ZETIA [Concomitant]
     Active Substance: EZETIMIBE
  9. ASPIRIN. [Concomitant]
     Active Substance: ASPIRIN
  10. BIOTIN [Concomitant]
     Active Substance: BIOTIN
  11. DIOVAN [Concomitant]
     Active Substance: VALSARTAN
  12. VYTORIN [Concomitant]
     Active Substance: EZETIMIBE\SIMVASTATIN

REACTIONS (2)
  - Arrhythmia [Recovered/Resolved]
  - Blood magnesium decreased [Recovered/Resolved]

NARRATIVE: CASE EVENT DATE: 20160825
